FAERS Safety Report 5206919-6 (Version None)
Quarter: 2007Q1

REPORT INFORMATION
  Report Type: 
  Country: None (occurrence: None)
  Receive Date: 20070105
  Receipt Date: 20070105
  Transmission Date: 20070707
  Serious: No
  Sender: FDA-Public Use
  Company Number: None

PATIENT
  Age: 78 Year
  Sex: Female

DRUGS (11)
  1. WARFARIN SODIUM [Suspect]
     Indication: ATRIAL FIBRILLATION
     Dosage: 5/7.5 Q OD
     Dates: start: 20060916, end: 20061019
  2. ASPIRIN [Concomitant]
  3. CLOPIDOGREL [Concomitant]
  4. DILTIAZEM HCL [Concomitant]
  5. ISOSORBIDE MN [Concomitant]
  6. IRON [Concomitant]
  7. POTASSIUM CHLORIDE [Concomitant]
  8. FUROSEMIDE [Concomitant]
  9. LANTHANUM [Concomitant]
  10. LANSOPRAZOLE [Concomitant]
  11. SIMVASTATIN [Concomitant]

REACTIONS (11)
  - ABDOMINAL PAIN [None]
  - DIARRHOEA [None]
  - DYSSTASIA [None]
  - FAECES DISCOLOURED [None]
  - FATIGUE [None]
  - HAEMATEMESIS [None]
  - HAEMATOCRIT DECREASED [None]
  - HAEMOGLOBIN DECREASED [None]
  - INTERNATIONAL NORMALISED RATIO INCREASED [None]
  - NAUSEA [None]
  - OCCULT BLOOD POSITIVE [None]
